FAERS Safety Report 18783012 (Version 3)
Quarter: 2021Q2

REPORT INFORMATION
  Report Type: Report from Study
  Country: KR (occurrence: KR)
  Receive Date: 20210125
  Receipt Date: 20210427
  Transmission Date: 20210717
  Serious: Yes (Hospitalization)
  Sender: FDA-Public Use
  Company Number: KR-JNJFOC-20210127135

PATIENT
  Age: 39 Year
  Sex: Male

DRUGS (24)
  1. FEROBA YOU [Concomitant]
     Indication: ANAEMIA
     Route: 048
     Dates: start: 20201204
  2. FEMORRUM [Concomitant]
     Indication: ANAEMIA
     Route: 042
     Dates: start: 20210121, end: 20210121
  3. ESWONAMP [Concomitant]
     Indication: PROPHYLAXIS AGAINST GASTROINTESTINAL ULCER
     Route: 048
     Dates: start: 20210127
  4. STELARA [Suspect]
     Active Substance: USTEKINUMAB
     Indication: CROHN^S DISEASE
     Route: 042
     Dates: start: 20201204, end: 20201204
  5. OXYCONTIN [Concomitant]
     Active Substance: OXYCODONE HYDROCHLORIDE
     Indication: ABDOMINAL PAIN
     Dosage: 3 TABS A DAY
     Route: 048
     Dates: start: 20190403
  6. PENIRAMIN [Concomitant]
     Dosage: 2 ML
     Route: 042
     Dates: start: 20210312, end: 20210312
  7. PENIRAMIN [Concomitant]
     Dosage: 2 ML
     Route: 042
     Dates: start: 20210331, end: 20210331
  8. FEROBA YOU [Concomitant]
     Indication: ANAEMIA
     Dosage: 1 TAB
     Route: 048
     Dates: start: 20201204
  9. PLASMA?LYTE 148 [Concomitant]
     Active Substance: MAGNESIUM CHLORIDE\POTASSIUM CHLORIDE\SODIUM ACETATE\SODIUM CHLORIDE\SODIUM GLUCONATE
     Indication: DIZZINESS
     Route: 042
     Dates: start: 20210101, end: 20210102
  10. PLASMA?LYTE 148 [Concomitant]
     Active Substance: MAGNESIUM CHLORIDE\POTASSIUM CHLORIDE\SODIUM ACETATE\SODIUM CHLORIDE\SODIUM GLUCONATE
     Route: 042
     Dates: start: 20210401, end: 20210401
  11. PENIRAMIN [Concomitant]
     Indication: PREMEDICATION
     Dosage: 2 ML
     Route: 042
     Dates: start: 20210130, end: 20210130
  12. GASMOTIN [Concomitant]
     Active Substance: MOSAPRIDE CITRATE
     Indication: DYSPEPSIA
     Route: 048
     Dates: start: 20210127
  13. PENIRAMIN [Concomitant]
     Dosage: 2 ML
     Route: 042
     Dates: start: 20210312, end: 20210312
  14. FEMORRUM [Concomitant]
     Route: 042
     Dates: start: 20210217, end: 20210217
  15. FEMORRUM [Concomitant]
     Route: 042
     Dates: start: 20210309, end: 20210309
  16. PLASMA?LYTE 148 [Concomitant]
     Active Substance: MAGNESIUM CHLORIDE\POTASSIUM CHLORIDE\SODIUM ACETATE\SODIUM CHLORIDE\SODIUM GLUCONATE
     Indication: ANAEMIA
     Route: 042
     Dates: start: 20210101, end: 20210102
  17. IRCODON [Concomitant]
     Active Substance: OXYCODONE HYDROCHLORIDE
     Indication: ABDOMINAL PAIN
     Route: 048
     Dates: start: 20201020
  18. FEMORRUM [Concomitant]
     Route: 042
     Dates: start: 20210317, end: 20210317
  19. STELARA [Suspect]
     Active Substance: USTEKINUMAB
     Route: 058
     Dates: start: 20210123, end: 20210123
  20. IRCODON [Concomitant]
     Active Substance: OXYCODONE HYDROCHLORIDE
     Indication: ABDOMINAL PAIN
     Route: 048
     Dates: start: 20141020
  21. PLASMA?LYTE 148 [Concomitant]
     Active Substance: MAGNESIUM CHLORIDE\POTASSIUM CHLORIDE\SODIUM ACETATE\SODIUM CHLORIDE\SODIUM GLUCONATE
     Indication: ANAEMIA
     Route: 042
     Dates: start: 20210101, end: 20210102
  22. DENOGAN [Concomitant]
     Active Substance: PROPACETAMOL HYDROCHLORIDE
     Indication: PREMEDICATION
     Route: 042
     Dates: start: 20210130, end: 20210130
  23. DENOGAN [Concomitant]
     Active Substance: PROPACETAMOL HYDROCHLORIDE
     Route: 042
     Dates: start: 20210220, end: 20210220
  24. ACTINAMIDE [Concomitant]
     Indication: ANAEMIA
     Dosage: 1000 MCG/2ML, 2ML PRN
     Route: 030
     Dates: start: 20210309, end: 20210309

REACTIONS (2)
  - Anaemia [Recovered/Resolved]
  - Dizziness [Recovered/Resolved]

NARRATIVE: CASE EVENT DATE: 20201225
